FAERS Safety Report 21388721 (Version 1)
Quarter: 2022Q3

REPORT INFORMATION
  Report Type: Spontaneous
  Country: US (occurrence: None)
  Receive Date: 20220927
  Receipt Date: 20220927
  Transmission Date: 20221027
  Serious: Yes (Hospitalization)
  Sender: FDA-Public Use
  Company Number: None

PATIENT
  Sex: Male

DRUGS (7)
  1. GLATIRAMER [Suspect]
     Active Substance: GLATIRAMER
     Indication: Multiple sclerosis
     Dosage: INJECT 20 MG (ONE PREFILLED SYRINGE) UNDER THE SKIN (SUBCUTANEOUS INJECTION) ONCE DAILY
     Route: 058
     Dates: start: 20200219
  2. CELECOXIB CAP [Concomitant]
  3. FLUOXETINE CAP [Concomitant]
  4. JANUMET TAB [Concomitant]
  5. LOSARTAN POT TAB [Concomitant]
  6. TAMSULOSIN [Concomitant]
     Active Substance: TAMSULOSIN
  7. TRULICITY INJ [Concomitant]

REACTIONS (3)
  - Accident [None]
  - Therapy interrupted [None]
  - Dizziness [None]
